FAERS Safety Report 12724988 (Version 7)
Quarter: 2017Q3

REPORT INFORMATION
  Report Type: Report from Study
  Country: CA (occurrence: CA)
  Receive Date: 20160908
  Receipt Date: 20170908
  Transmission Date: 20171127
  Serious: Yes (Death, Hospitalization)
  Sender: FDA-Public Use
  Company Number: CA-HLSUS-2016-CA-000309

PATIENT
  Age: 68 Year
  Sex: Male
  Weight: 59 kg

DRUGS (12)
  1. SEROQUEL [Concomitant]
     Active Substance: QUETIAPINE FUMARATE
     Dosage: 25 MG AT BED TIME
     Route: 048
     Dates: start: 20160420
  2. COLACE [Concomitant]
     Active Substance: DOCUSATE SODIUM
     Dosage: 1 TO 2 CAP NIGHT IF REQ
     Route: 048
     Dates: start: 20160705
  3. RAPAFLO [Concomitant]
     Active Substance: SILODOSIN
     Dosage: 8 MG TWICE A DAY
     Route: 048
     Dates: start: 20150917
  4. IRON [Concomitant]
     Active Substance: IRON
     Dosage: 300 G TWICE A DAY
     Route: 048
     Dates: start: 20160705
  5. ABILIFY [Concomitant]
     Active Substance: ARIPIPRAZOLE
     Dosage: 30 MG PER DAY
     Route: 048
     Dates: start: 20160420
  6. LIPIODOL [Concomitant]
     Active Substance: ETHIODIZED OIL
     Dosage: 160 G PER DAY
     Route: 048
     Dates: start: 20150917
  7. ATIVAN [Concomitant]
     Active Substance: LORAZEPAM
     Dosage: 2 MG TWICE A DAY IF REQ
     Route: 048
     Dates: start: 20160601
  8. PLAVIX [Concomitant]
     Active Substance: CLOPIDOGREL BISULFATE
     Dosage: 75 MG TWICE A DAY
     Dates: start: 20160708
  9. SENOKOT [Concomitant]
     Active Substance: SENNOSIDES
     Dosage: 8.6 G TWICE A DAY
     Route: 048
     Dates: start: 20150525
  10. CLOZARIL [Suspect]
     Active Substance: CLOZAPINE
     Indication: SCHIZOPHRENIA
     Route: 048
     Dates: start: 20040402, end: 20170802
  11. ATROPINE. [Concomitant]
     Active Substance: ATROPINE
     Dosage: AT BED TIME
     Dates: start: 20160420
  12. KEMADRIN [Concomitant]
     Active Substance: PROCYCLIDINE HYDROCHLORIDE
     Dosage: 2.5 G TWICE A DAY
     Route: 048
     Dates: start: 20160420

REACTIONS (6)
  - Bacteraemia [Unknown]
  - Abdominal infection [Unknown]
  - Pyrexia [Unknown]
  - Colon neoplasm [Unknown]
  - Metastasis [Unknown]
  - Death [Fatal]

NARRATIVE: CASE EVENT DATE: 20160713
